FAERS Safety Report 12421289 (Version 2)
Quarter: 2016Q3

REPORT INFORMATION
  Report Type: Spontaneous
  Country: BR (occurrence: BR)
  Receive Date: 20160531
  Receipt Date: 20160705
  Transmission Date: 20161109
  Serious: No
  Sender: FDA-Public Use
  Company Number: BR-B.I. PHARMACEUTICALS,INC./RIDGEFIELD-2016-BI-32579BR

PATIENT
  Age: 39 Year
  Sex: Female
  Weight: 72 kg

DRUGS (5)
  1. PRADAXA [Suspect]
     Active Substance: DABIGATRAN ETEXILATE MESYLATE
     Indication: PULMONARY EMBOLISM
     Dosage: 300 MG
     Route: 048
     Dates: start: 20160328
  2. DIPYRONE [Concomitant]
     Active Substance: DIPYRONE
     Indication: POSTOPERATIVE CARE
     Route: 065
  3. POLYVITAMIN [Concomitant]
     Active Substance: VITAMINS
     Indication: SUPPLEMENTATION THERAPY
     Route: 048
  4. LINOLEIC ACID [Concomitant]
     Active Substance: LINOLEIC ACID
     Indication: SUPPLEMENTATION THERAPY
     Route: 048
  5. PROFENID [Concomitant]
     Active Substance: KETOPROFEN
     Indication: POSTOPERATIVE CARE
     Route: 065

REACTIONS (9)
  - Throat irritation [Recovered/Resolved]
  - Foreign body [Recovered/Resolved]
  - Foreign body [Recovered/Resolved]
  - Throat tightness [Recovered/Resolved]
  - Syncope [Recovered/Resolved]
  - Blood pressure decreased [Recovered/Resolved]
  - Throat irritation [Recovered/Resolved]
  - Foreign body [Recovered/Resolved]
  - Throat irritation [Recovered/Resolved]

NARRATIVE: CASE EVENT DATE: 20160517
